FAERS Safety Report 5836685-2 (Version None)
Quarter: 2008Q3

REPORT INFORMATION
  Report Type: 
  Country: None (occurrence: None)
  Receive Date: 20080807
  Receipt Date: 20080729
  Transmission Date: 20090109
  Serious: Yes (Hospitalization)
  Sender: FDA-Public Use
  Company Number: US-AMGEN-QUU298141

PATIENT
  Sex: Female

DRUGS (2)
  1. ENBREL [Suspect]
     Indication: RHEUMATOID ARTHRITIS
     Route: 058
     Dates: start: 20011001
  2. METHOTREXATE [Concomitant]
     Route: 048

REACTIONS (5)
  - COUGH [None]
  - HAIR TEXTURE ABNORMAL [None]
  - JOINT SWELLING [None]
  - RHEUMATOID ARTHRITIS [None]
  - SINUSITIS [None]
